FAERS Safety Report 11133644 (Version 1)
Quarter: 2015Q2

REPORT INFORMATION
  Report Type: Spontaneous
  Country: PT (occurrence: PT)
  Receive Date: 20150523
  Receipt Date: 20150523
  Transmission Date: 20150821
  Serious: Yes (Other)
  Sender: FDA-Public Use
  Company Number: PHHY2015PT060776

PATIENT
  Sex: Female

DRUGS (1)
  1. COPALIA [Suspect]
     Active Substance: AMLODIPINE BESYLATE\VALSARTAN
     Indication: HYPERTENSION
     Route: 048
     Dates: start: 201503, end: 20150424

REACTIONS (5)
  - Insomnia [Unknown]
  - Back pain [Unknown]
  - Alopecia [Unknown]
  - Blindness [Unknown]
  - Visual impairment [Unknown]
